FAERS Safety Report 7047053-2 (Version None)
Quarter: 2010Q4

REPORT INFORMATION
  Report Type: 
  Country: None (occurrence: None)
  Receive Date: 20101015
  Receipt Date: 20101006
  Transmission Date: 20110411
  Serious: Yes (Other)
  Sender: FDA-Public Use
  Company Number: US-SANOFI-AVENTIS-2010SA062128

PATIENT
  Sex: Female

DRUGS (4)
  1. LANTUS [Suspect]
     Dosage: DOSE:80 UNIT(S)
     Route: 058
  2. APIDRA [Suspect]
     Dosage: 30-36 UNITS
     Route: 058
  3. OPTICLICK [Suspect]
     Route: 058
  4. OPTICLICK [Suspect]

REACTIONS (2)
  - BLINDNESS UNILATERAL [None]
  - VISION BLURRED [None]
